FAERS Safety Report 7801435-7 (Version None)
Quarter: 2011Q4

REPORT INFORMATION
  Report Type: 
  Country: None (occurrence: None)
  Receive Date: 20111006
  Receipt Date: 20111006
  Transmission Date: 20120403
  Serious: Yes (Hospitalization)
  Sender: FDA-Public Use
  Company Number: None

PATIENT
  Age: 69 Year
  Sex: Male
  Weight: 120.7 kg

DRUGS (8)
  1. FUROSEMIDE [Concomitant]
  2. VIT B12 [Concomitant]
  3. AMLODIPINE [Concomitant]
  4. LABETALOL HCL [Concomitant]
  5. LISINOPRIL [Concomitant]
  6. FOLIC ACID [Concomitant]
  7. GLYBURIDE [Concomitant]
  8. AMOXICILLIN [Suspect]
     Indication: TOOTH ABSCESS
     Dosage: PO RECENT

REACTIONS (4)
  - ANAPHYLACTIC REACTION [None]
  - ISCHAEMIA [None]
  - CARDIAC DISORDER [None]
  - ACUTE CORONARY SYNDROME [None]
